FAERS Safety Report 9514648 (Version 1)
Quarter: 2013Q3

REPORT INFORMATION
  Report Type: Report from Study
  Country: US (occurrence: US)
  Receive Date: 20130911
  Receipt Date: 20130911
  Transmission Date: 20140515
  Serious: Yes (Other)
  Sender: FDA-Public Use
  Company Number: US-ROCHE-1271522

PATIENT
  Age: 22 Year
  Sex: Female
  Weight: 77.18 kg

DRUGS (6)
  1. XOLAIR [Suspect]
     Indication: ASTHMA
     Dosage: 3 SHOTS
     Route: 065
     Dates: start: 20130815
  2. XOLAIR [Suspect]
     Dosage: 1 SHOT
     Route: 065
     Dates: start: 20130903
  3. XOPENEX [Concomitant]
     Indication: ASTHMA
     Dosage: 2 PUFFS
     Route: 055
     Dates: start: 1997
  4. SYMBICORT [Concomitant]
     Indication: ASTHMA
     Dosage: 2 PUFFS IN MORNING; 2 PUFFS AT NIGHT
     Route: 055
     Dates: start: 2007
  5. ELESTAT [Concomitant]
     Indication: EYE ALLERGY
     Dosage: 2 DROPS IN BOTH EYES
     Route: 065
     Dates: start: 2007
  6. SINGULAIR [Concomitant]
     Indication: ASTHMA
     Route: 048
     Dates: start: 2007

REACTIONS (7)
  - Anaphylactic reaction [Recovered/Resolved]
  - Chest pain [Not Recovered/Not Resolved]
  - Dizziness [Recovered/Resolved]
  - Dyspnoea [Unknown]
  - Dizziness [Unknown]
  - Paraesthesia [Unknown]
  - Hypoaesthesia [Unknown]
